FAERS Safety Report 21395996 (Version 1)
Quarter: 2022Q3

REPORT INFORMATION
  Report Type: Spontaneous
  Country: US (occurrence: None)
  Receive Date: 20220928
  Receipt Date: 20220928
  Transmission Date: 20221027
  Serious: No
  Sender: FDA-Public Use
  Company Number: None

PATIENT
  Age: 3 Year
  Sex: Male

DRUGS (1)
  1. LIDOCAINE AND PRILOCAINE [Suspect]
     Active Substance: LIDOCAINE\PRILOCAINE
     Indication: Hypogammaglobulinaemia
     Dosage: OTHER QUANTITY : 2.5/2.5%;?FREQUENCY : WEEKLY;?
     Route: 061
     Dates: start: 20220819, end: 20220819

REACTIONS (1)
  - Drug hypersensitivity [None]

NARRATIVE: CASE EVENT DATE: 20220819
